FAERS Safety Report 16975953 (Version 1)
Quarter: 2019Q4

REPORT INFORMATION
  Report Type: Spontaneous
  Country: DK (occurrence: DK)
  Receive Date: 20191030
  Receipt Date: 20191030
  Transmission Date: 20200122
  Serious: Yes (Disabling, Other)
  Sender: FDA-Public Use
  Company Number: DK-SHIRE-DK201935243

PATIENT

DRUGS (2)
  1. ELVANSE [Suspect]
     Active Substance: LISDEXAMFETAMINE DIMESYLATE
     Indication: ATTENTION DEFICIT/HYPERACTIVITY DISORDER
     Dosage: 40-60 MG. 1 GANG DAGLIGT. STYRKE: 40 MG OG 20 MG.
     Route: 048
     Dates: start: 20171030, end: 20180309
  2. STRATTERA [Suspect]
     Active Substance: ATOMOXETINE HYDROCHLORIDE
     Indication: ATTENTION DEFICIT/HYPERACTIVITY DISORDER
     Dosage: 18 MG - 40 MG 1 GANG DAGLIGT. STYRKE: 18 MG OG 40 MG.
     Route: 048
     Dates: start: 20170822, end: 20171002

REACTIONS (12)
  - Palpitations [Unknown]
  - Headache [Unknown]
  - Influenza like illness [Unknown]
  - Food aversion [Unknown]
  - Nausea [Unknown]
  - Hypertension [Unknown]
  - Feeling abnormal [Unknown]
  - Impaired work ability [Recovered/Resolved]
  - Dizziness [Unknown]
  - Left ventricular failure [Recovered/Resolved]
  - Back disorder [Unknown]
  - Dyspnoea [Unknown]

NARRATIVE: CASE EVENT DATE: 2017
